FAERS Safety Report 13521807 (Version 1)
Quarter: 2017Q2

REPORT INFORMATION
  Report Type: Spontaneous
  Country: US (occurrence: US)
  Receive Date: 20170508
  Receipt Date: 20170508
  Transmission Date: 20170830
  Serious: No
  Sender: FDA-Public Use
  Company Number: US-BAYER-2017-086406

PATIENT
  Age: 89 Year
  Sex: Male
  Weight: 109 kg

DRUGS (1)
  1. ALEVE [Suspect]
     Active Substance: NAPROXEN SODIUM
     Indication: PAIN
     Dosage: 4 DF, QD (4 TABLETS IN 1 DAY)
     Route: 048
     Dates: start: 20170505

REACTIONS (3)
  - Product use issue [Unknown]
  - Incorrect dosage administered [Unknown]
  - Expired product administered [Unknown]

NARRATIVE: CASE EVENT DATE: 20170505
